FAERS Safety Report 18085118 (Version 7)
Quarter: 2022Q4

REPORT INFORMATION
  Report Type: Report from Study
  Country: CL (occurrence: CL)
  Receive Date: 20200729
  Receipt Date: 20221011
  Transmission Date: 20230113
  Serious: Yes (Disabling, Other)
  Sender: FDA-Public Use
  Company Number: NVSC2020CL150392

PATIENT
  Sex: Female

DRUGS (8)
  1. COSENTYX [Suspect]
     Active Substance: SECUKINUMAB
     Indication: Psoriatic arthropathy
     Dosage: 150 MG, QMO
     Route: 058
     Dates: start: 20200512
  2. COSENTYX [Suspect]
     Active Substance: SECUKINUMAB
     Dosage: 150 MG
     Route: 058
     Dates: start: 20200609
  3. COSENTYX [Suspect]
     Active Substance: SECUKINUMAB
     Dosage: 150 MG, QMO
     Route: 058
     Dates: start: 20200612
  4. COSENTYX [Suspect]
     Active Substance: SECUKINUMAB
     Dosage: 150 MG
     Route: 048
     Dates: start: 20200719
  5. COSENTYX [Suspect]
     Active Substance: SECUKINUMAB
     Dosage: 150 MG
     Route: 058
     Dates: start: 20201219
  6. COSENTYX [Suspect]
     Active Substance: SECUKINUMAB
     Dosage: 150 MG, QMO
     Route: 058
     Dates: start: 20210921
  7. COSENTYX [Suspect]
     Active Substance: SECUKINUMAB
     Dosage: 150 MG, QMO
     Route: 058
  8. COSENTYX [Suspect]
     Active Substance: SECUKINUMAB
     Dosage: 150 MG, UNKNOWN
     Route: 065
     Dates: start: 20211221

REACTIONS (28)
  - Gait disturbance [Recovered/Resolved]
  - Pain [Recovering/Resolving]
  - Psoriatic arthropathy [Unknown]
  - Acne [Unknown]
  - Scab [Unknown]
  - Erythema [Unknown]
  - Hypersensitivity [Unknown]
  - Scratch [Unknown]
  - Swelling [Unknown]
  - Neck pain [Unknown]
  - Musculoskeletal pain [Unknown]
  - Diaphragmalgia [Unknown]
  - Ill-defined disorder [Unknown]
  - Somnolence [Unknown]
  - Nervousness [Unknown]
  - Arthritis [Not Recovered/Not Resolved]
  - Crying [Unknown]
  - Arthropathy [Not Recovered/Not Resolved]
  - Dysstasia [Unknown]
  - Rash macular [Recovering/Resolving]
  - Musculoskeletal discomfort [Not Recovered/Not Resolved]
  - Anxiety [Not Recovered/Not Resolved]
  - Swelling face [Recovering/Resolving]
  - Dyspepsia [Recovering/Resolving]
  - Illness [Unknown]
  - Movement disorder [Unknown]
  - Incorrect route of product administration [Unknown]
  - Drug ineffective [Unknown]

NARRATIVE: CASE EVENT DATE: 20200101
